FAERS Safety Report 23661447 (Version 6)
Quarter: 2025Q2

REPORT INFORMATION
  Report Type: Report from Study
  Country: BR (occurrence: BR)
  Receive Date: 20240322
  Receipt Date: 20250620
  Transmission Date: 20250716
  Serious: Yes (Hospitalization, Other)
  Sender: AMGEN
  Company Number: BR-AMGEN-BRASL2024057450

PATIENT
  Age: 47 Year
  Sex: Male

DRUGS (1)
  1. VECTIBIX [Suspect]
     Active Substance: PANITUMUMAB
     Indication: Colorectal cancer
     Route: 042
     Dates: start: 20240223, end: 202505

REACTIONS (11)
  - Acne pustular [Recovering/Resolving]
  - Epistaxis [Recovering/Resolving]
  - Neoplasm progression [Not Recovered/Not Resolved]
  - Skin irritation [Recovering/Resolving]
  - Drug hypersensitivity [Not Recovered/Not Resolved]
  - Dry skin [Not Recovered/Not Resolved]
  - Erythema [Recovering/Resolving]
  - Skin exfoliation [Recovering/Resolving]
  - Ocular hyperaemia [Recovering/Resolving]
  - Contusion [Recovering/Resolving]
  - Drug ineffective [Not Recovered/Not Resolved]

NARRATIVE: CASE EVENT DATE: 20240101
